FAERS Safety Report 7305573-7 (Version None)
Quarter: 2011Q1

REPORT INFORMATION
  Report Type: 
  Country: None (occurrence: None)
  Receive Date: 20110222
  Receipt Date: 20110215
  Transmission Date: 20110831
  Serious: Yes (Other)
  Sender: FDA-Public Use
  Company Number: US-PFIZER INC-2010153777

PATIENT
  Age: 51 Year
  Sex: Female
  Weight: 90.703 kg

DRUGS (4)
  1. ADVIL [Suspect]
     Indication: DYSMENORRHOEA
  2. SINGULAIR [Concomitant]
  3. ZYRTEC [Concomitant]
  4. ADVIL [Suspect]
     Indication: HEADACHE
     Dosage: 1 UNK, UNK

REACTIONS (4)
  - ECZEMA [None]
  - COELIAC DISEASE [None]
  - MENSTRUAL DISORDER [None]
  - HYSTERECTOMY [None]
